FAERS Safety Report 8818383 (Version 2)
Quarter: 2012Q4

REPORT INFORMATION
  Report Type: 
  Country: US (occurrence: US)
  Receive Date: 20121001
  Receipt Date: 20121115
  Transmission Date: 20130627
  Serious: Yes (Other)
  Sender: FDA-Public Use
  Company Number: US-ASTRAZENECA-2012SE73954

PATIENT
  Age: 66 Year
  Sex: Female

DRUGS (1)
  1. NEXIUM [Suspect]
     Route: 048

REACTIONS (8)
  - Hip fracture [Unknown]
  - Hodgkin^s disease [Unknown]
  - Neoplasm malignant [Unknown]
  - Osteoporosis [Unknown]
  - Facial bones fracture [Unknown]
  - Fall [Unknown]
  - Somnolence [Unknown]
  - Malaise [Unknown]
